FAERS Safety Report 5331372-1 (Version None)
Quarter: 2007Q2

REPORT INFORMATION
  Report Type: 
  Country: None (occurrence: None)
  Receive Date: 20070522
  Receipt Date: 20070516
  Transmission Date: 20071010
  Serious: Yes (Other)
  Sender: FDA-Public Use
  Company Number: US-SANOFI-SYNTHELABO-A03200703143

PATIENT
  Age: 56 Year
  Sex: Female
  Weight: 54.4 kg

DRUGS (5)
  1. ANGIOTENSIN RECEPTOR BLOCKER [Concomitant]
     Dosage: UNK
     Route: 048
  2. CATAPRES [Concomitant]
     Dosage: UNK
     Route: 048
  3. TENORMIN [Concomitant]
     Dosage: UNK
     Route: 048
  4. PLAVIX [Suspect]
     Indication: CATHETERISATION CARDIAC
     Route: 048
     Dates: start: 20061201
  5. PLAVIX [Suspect]
     Indication: STENT PLACEMENT
     Route: 048
     Dates: start: 20061201

REACTIONS (3)
  - HYPERTENSION [None]
  - PERIPHERAL EMBOLISM [None]
  - RENAL FAILURE CHRONIC [None]
